FAERS Safety Report 10952643 (Version 1)
Quarter: 2015Q1

REPORT INFORMATION
  Report Type: Spontaneous
  Country: US (occurrence: None)
  Receive Date: 20150323
  Receipt Date: 20150323
  Transmission Date: 20150721
  Serious: No
  Sender: FDA-Public Use
  Company Number: VIT-2014-02706

PATIENT
  Age: 58 Year
  Sex: Female
  Weight: 77.2 kg

DRUGS (1)
  1. VELPHORO [Suspect]
     Active Substance: FERRIC OXYHYDROXIDE
     Indication: HYPERPHOSPHATAEMIA
     Route: 048

REACTIONS (3)
  - Product taste abnormal [None]
  - Dysgeusia [None]
  - Abdominal pain [None]

NARRATIVE: CASE EVENT DATE: 20141218
